FAERS Safety Report 4875735-7 (Version None)
Quarter: 2006Q1

REPORT INFORMATION
  Report Type: 
  Country: None (occurrence: None)
  Receive Date: 20060105
  Receipt Date: 20060103
  Transmission Date: 20060701
  Serious: Yes (Congenital Anomaly)
  Sender: FDA-Public Use
  Company Number: THQ2005A01109

PATIENT
  Sex: Female

DRUGS (2)
  1. DARONDA INJECTION (LEUPROLIDE ACETATE) (INJECTION) [Suspect]
     Indication: IN VITRO FERTILISATION
     Dosage: 0.2 ML (0.2 ML, 1 IN 1 D), TRANSPLACENTAL
     Route: 064
     Dates: start: 20011101
  2. FOLLITROPIN BETA [Concomitant]

REACTIONS (3)
  - DRUG EXPOSURE BEFORE PREGNANCY [None]
  - TRISOMY 21 [None]
  - TWIN PREGNANCY [None]
